FAERS Safety Report 4577995-9 (Version None)
Quarter: 2005Q1

REPORT INFORMATION
  Report Type: 
  Country: None (occurrence: None)
  Receive Date: 20050209
  Receipt Date: 20050126
  Transmission Date: 20050727
  Serious: Yes (Life-Threatening, Hospitalization, Other)
  Sender: FDA-Public Use
  Company Number: GB-SHR-03-016854

PATIENT
  Age: 37 Year
  Sex: Female
  Weight: 125.0113 kg

DRUGS (5)
  1. CAMPATH [Suspect]
     Indication: ALLOGENIC BONE MARROW TRANSPLANTATION THERAPY
     Dosage: 10 MG 2 INTRAVENOUS
     Route: 042
     Dates: start: 20031015, end: 20031016
  2. FLUDARABINE PHOSPHATE [Suspect]
     Indication: ALLOGENIC BONE MARROW TRANSPLANTATION THERAPY
     Dosage: 60 MG 1 DOSE
     Dates: start: 20031015, end: 20031016
  3. HYDROXYURIEA [Concomitant]
  4. ALLOPURINOL [Concomitant]
  5. ITRACONAZOLE [Concomitant]

REACTIONS (8)
  - ALANINE AMINOTRANSFERASE INCREASED [None]
  - ANURIA [None]
  - DISSEMINATED INTRAVASCULAR COAGULATION [None]
  - HAEMODIALYSIS [None]
  - POOR VENOUS ACCESS [None]
  - PULMONARY EMBOLISM [None]
  - PYREXIA [None]
  - RENAL FAILURE [None]
